FAERS Safety Report 8953106 (Version 1)
Quarter: 2012Q4

REPORT INFORMATION
  Report Type: 
  Country: US (occurrence: US)
  Receive Date: 20121205
  Receipt Date: 20121205
  Transmission Date: 20130627
  Serious: Yes (Hospitalization)
  Sender: FDA-Public Use
  Company Number: US-ASTRAZENECA-2012SE89349

PATIENT
  Age: 63 Year
  Sex: Female
  Weight: 82.1 kg

DRUGS (1)
  1. CRESTOR [Suspect]
     Route: 048
     Dates: start: 20071126, end: 20120916

REACTIONS (6)
  - Rhabdomyolysis [Unknown]
  - Renal failure acute [Unknown]
  - Fluid retention [Unknown]
  - Myalgia [Unknown]
  - Fatigue [Unknown]
  - Mobility decreased [Unknown]
